FAERS Safety Report 25466506 (Version 1)
Quarter: 2025Q2

REPORT INFORMATION
  Report Type: Spontaneous
  Country: US (occurrence: US)
  Receive Date: 20250623
  Receipt Date: 20250623
  Transmission Date: 20250716
  Serious: Yes (Other)
  Sender: COOPERSURGICAL
  Company Number: US-COOPERSURGICAL, INC.-2025CPS004956

PATIENT
  Age: 35 Year
  Sex: Female
  Weight: 92.971 kg

DRUGS (2)
  1. PARAGARD T 380A [Suspect]
     Active Substance: COPPER
     Indication: Contraception
     Route: 015
     Dates: start: 20150805
  2. LORATADINE [Concomitant]
     Active Substance: LORATADINE
     Dates: start: 201509, end: 201712

REACTIONS (12)
  - Reproductive complication associated with device [Not Recovered/Not Resolved]
  - Infertility female [Not Recovered/Not Resolved]
  - Device breakage [Not Recovered/Not Resolved]
  - Foreign body in reproductive tract [Not Recovered/Not Resolved]
  - Complication of device removal [Not Recovered/Not Resolved]
  - Depression [Unknown]
  - Vaginal disorder [Unknown]
  - Intermenstrual bleeding [Unknown]
  - Dyspareunia [Unknown]
  - Heavy menstrual bleeding [Unknown]
  - Vaginal discharge [Unknown]
  - Unevaluable event [Recovered/Resolved]

NARRATIVE: CASE EVENT DATE: 20150801
